FAERS Safety Report 6390412-1 (Version None)
Quarter: 2009Q4

REPORT INFORMATION
  Report Type: 
  Country: None (occurrence: None)
  Receive Date: 20091006
  Receipt Date: 20090924
  Transmission Date: 20100525
  Serious: Yes (Death, Life-Threatening)
  Sender: FDA-Public Use
  Company Number: HQWYE012727APR06

PATIENT
  Sex: Female
  Weight: 60.5 kg

DRUGS (29)
  1. METHYLNALTREXONE BROMIDE [Suspect]
     Indication: CONSTIPATION
     Route: 058
     Dates: start: 20040528, end: 20040528
  2. METHYLNALTREXONE BROMIDE [Suspect]
     Route: 058
     Dates: start: 20040529, end: 20040529
  3. METHYLNALTREXONE BROMIDE [Suspect]
     Route: 058
     Dates: start: 20040602, end: 20040602
  4. LASIX [Concomitant]
     Dosage: UNKNOWN
     Route: 065
     Dates: start: 20040226, end: 20040603
  5. LOPRESSOR [Concomitant]
     Dosage: UNKNOWN
     Route: 065
     Dates: start: 20040226, end: 20040603
  6. VASOTEC [Concomitant]
     Dosage: UNKNOWN
     Route: 065
     Dates: start: 20040226, end: 20040603
  7. NORVASC [Concomitant]
     Dosage: UNKNOWN
     Route: 065
     Dates: start: 20040412, end: 20040603
  8. IMDUR [Concomitant]
     Dosage: UNKNOWN
     Route: 065
     Dates: start: 20040226, end: 20040603
  9. ASPIRIN [Concomitant]
     Dosage: UNKNOWN
     Route: 065
     Dates: start: 20040226, end: 20040603
  10. LESCOL [Concomitant]
     Dosage: UNKNOWN
     Route: 065
     Dates: start: 20040226, end: 20040603
  11. PROVENTIL-HFA [Concomitant]
     Dosage: UNKNOWN
     Route: 065
     Dates: start: 20040226, end: 20040603
  12. HUMULIN N [Concomitant]
     Indication: DIABETES MELLITUS
     Dosage: UNKNOWN
     Route: 065
     Dates: start: 20040316, end: 20040603
  13. INSULIN HUMAN INJECTION, ISOPHANE/INSULIN HUMAN ZINC SUSPENSION [Concomitant]
     Indication: DIABETES MELLITUS
     Dosage: UNKNOWN
     Route: 065
     Dates: start: 20040316, end: 20040603
  14. DARVOCET-N 100 [Concomitant]
     Dosage: UNKNOWN
     Route: 065
     Dates: start: 20040226, end: 20040603
  15. ROXICODONE [Concomitant]
     Indication: PAIN
     Dosage: UNKNOWN
     Route: 065
     Dates: start: 20040517, end: 20040603
  16. ELAVIL [Concomitant]
     Dosage: UNKNOWN
     Route: 065
     Dates: start: 20040226, end: 20040603
  17. REMERON [Concomitant]
     Dosage: UNKNOWN
     Route: 065
     Dates: start: 20040226, end: 20040603
  18. K-DUR [Concomitant]
     Dosage: UNKNOWN
     Route: 065
     Dates: start: 20040226, end: 20040603
  19. COMPAZINE [Concomitant]
     Indication: NAUSEA
     Dosage: UNKNOWN
     Route: 065
     Dates: start: 20040226, end: 20040603
  20. COMPAZINE [Concomitant]
     Indication: VOMITING
  21. COLACE [Concomitant]
     Indication: CONSTIPATION
     Dosage: UNKNOWN
     Route: 065
     Dates: start: 20040226, end: 20040603
  22. ENULOSE [Concomitant]
     Indication: CONSTIPATION
     Dosage: UNKNOWN
     Route: 065
     Dates: start: 20040419, end: 20040603
  23. SENOKOT [Concomitant]
     Indication: CONSTIPATION
     Dosage: UNKNOWN
     Route: 065
     Dates: start: 20040427, end: 20040603
  24. MORPHINE [Concomitant]
     Dosage: UNKNOWN
     Route: 065
     Dates: start: 20040226, end: 20040603
  25. OXYCONTIN [Concomitant]
     Indication: PAIN
     Dosage: UNKNOWN
     Route: 065
     Dates: start: 20040512, end: 20040603
  26. ATIVAN [Concomitant]
     Dosage: UNKNOWN
     Route: 065
     Dates: start: 20040226, end: 20040603
  27. HALDOL [Concomitant]
     Dosage: UNKNOWN
     Route: 065
     Dates: start: 20040226, end: 20040603
  28. LEVSIN [Concomitant]
     Dosage: UNKNOWN
     Route: 065
     Dates: start: 20040226, end: 20040603
  29. ALDACTONE [Concomitant]
     Dosage: UNKNOWN
     Route: 065
     Dates: start: 20040226, end: 20040603

REACTIONS (4)
  - CIRCULATORY COLLAPSE [None]
  - DEHYDRATION [None]
  - DIARRHOEA [None]
  - MALIGNANT NEOPLASM PROGRESSION [None]
